FAERS Safety Report 8445794-3 (Version None)
Quarter: 2012Q2

REPORT INFORMATION
  Report Type: 
  Country: None (occurrence: None)
  Receive Date: 20120618
  Receipt Date: 20120614
  Transmission Date: 20120825
  Serious: Yes (Other)
  Sender: FDA-Public Use
  Company Number: FR-PFIZER INC-2011237127

PATIENT
  Age: 42 Year
  Sex: Female

DRUGS (8)
  1. SOLU-MEDROL [Suspect]
     Indication: ALOPECIA TOTALIS
     Dosage: 500 MG, 1X/DAY
     Route: 040
     Dates: start: 20110413, end: 20110415
  2. SOLU-MEDROL [Suspect]
     Dosage: 500 MG, 1X/DAY
     Route: 040
     Dates: start: 20110516, end: 20110518
  3. OMEPRAZOLE [Suspect]
     Dosage: 20 MG, 1X/DAY
     Route: 048
     Dates: start: 20110413, end: 20110423
  4. SOLU-MEDROL [Suspect]
     Dosage: 500 MG, 1X/DAY
     Route: 040
     Dates: start: 20110620, end: 20110622
  5. OMEPRAZOLE [Suspect]
     Dosage: 20 MG, 1X/DAY
     Route: 048
     Dates: start: 20110620, end: 20110630
  6. SOLU-MEDROL [Suspect]
     Dosage: UNK
     Dates: start: 20110718, end: 20110720
  7. OMEPRAZOLE [Suspect]
     Dosage: 20 MG, 1X/DAY
     Route: 048
     Dates: start: 20110516, end: 20110526
  8. OMEPRAZOLE [Suspect]
     Dosage: UNK
     Dates: start: 20110720, end: 20110728

REACTIONS (2)
  - HEPATIC FAILURE [None]
  - HEPATITIS [None]
